FAERS Safety Report 12223375 (Version 2)
Quarter: 2016Q2

REPORT INFORMATION
  Report Type: Spontaneous
  Country: US (occurrence: US)
  Receive Date: 20160330
  Receipt Date: 20160401
  Transmission Date: 20160815
  Serious: Yes (Hospitalization, Other)
  Sender: FDA-Public Use
  Company Number: US-ABBVIE-16K-163-1586500-00

PATIENT
  Age: 39 Year
  Sex: Female

DRUGS (10)
  1. HUMIRA [Suspect]
     Active Substance: ADALIMUMAB
     Route: 058
     Dates: start: 2012, end: 201401
  2. HUMIRA [Suspect]
     Active Substance: ADALIMUMAB
     Route: 058
     Dates: start: 2012, end: 2012
  3. ASPIRIN. [Concomitant]
     Active Substance: ASPIRIN
     Indication: COMPLICATION OF PREGNANCY
  4. HUMIRA [Suspect]
     Active Substance: ADALIMUMAB
     Route: 058
     Dates: start: 20160217, end: 20160217
  5. LOVENOX [Concomitant]
     Active Substance: ENOXAPARIN SODIUM
     Indication: COMPLICATION OF PREGNANCY
  6. ASPIRIN. [Concomitant]
     Active Substance: ASPIRIN
     Indication: CARDIOLIPIN ANTIBODY POSITIVE
     Dates: start: 201509
  7. HUMIRA [Suspect]
     Active Substance: ADALIMUMAB
     Route: 058
     Dates: start: 201401, end: 201509
  8. HUMIRA [Suspect]
     Active Substance: ADALIMUMAB
     Route: 058
     Dates: start: 201603, end: 201603
  9. LOVENOX [Concomitant]
     Active Substance: ENOXAPARIN SODIUM
     Indication: CARDIOLIPIN ANTIBODY POSITIVE
     Dates: start: 201509
  10. HUMIRA [Suspect]
     Active Substance: ADALIMUMAB
     Indication: CROHN^S DISEASE
     Route: 058
     Dates: start: 2012, end: 2012

REACTIONS (14)
  - Fatigue [Unknown]
  - Night sweats [Unknown]
  - Crohn^s disease [Recovered/Resolved]
  - Exposure during pregnancy [Unknown]
  - Autoimmune haemolytic anaemia [Unknown]
  - Dyspnoea [Unknown]
  - Normal newborn [Unknown]
  - Drug specific antibody present [Unknown]
  - Haemoglobin decreased [Unknown]
  - Abdominal pain [Unknown]
  - Crohn^s disease [Recovered/Resolved]
  - Hepatosplenic T-cell lymphoma [Not Recovered/Not Resolved]
  - Hepatosplenomegaly [Unknown]
  - Thrombocytopenia [Unknown]

NARRATIVE: CASE EVENT DATE: 2014
